FAERS Safety Report 4296650-6 (Version None)
Quarter: 2004Q1

REPORT INFORMATION
  Report Type: 
  Country: None (occurrence: None)
  Receive Date: 20040217
  Receipt Date: 20031209
  Transmission Date: 20041129
  Serious: Yes (Hospitalization)
  Sender: FDA-Public Use
  Company Number: DE-ROCHE-353616

PATIENT
  Age: 39 Year
  Sex: Male

DRUGS (4)
  1. FUZEON [Suspect]
     Route: 058
     Dates: start: 20031113
  2. KALETRA [Concomitant]
     Route: 048
  3. VIREAD [Concomitant]
     Dosage: DOSE STATED AS 245
     Dates: start: 20031113
  4. VIDEX [Concomitant]
     Dosage: DOSE STATED AS 250
     Dates: start: 20031113

REACTIONS (1)
  - SUICIDE ATTEMPT [None]
